FAERS Safety Report 13645089 (Version 1)
Quarter: 2017Q2

REPORT INFORMATION
  Report Type: Spontaneous
  Country: US (occurrence: US)
  Receive Date: 20170612
  Receipt Date: 20170612
  Transmission Date: 20170830
  Serious: No
  Sender: FDA-Public Use
  Company Number: US-ROCHE-1414326

PATIENT
  Sex: Male
  Weight: 75.36 kg

DRUGS (1)
  1. XELODA [Suspect]
     Active Substance: CAPECITABINE
     Indication: COLON CANCER METASTATIC
     Dosage: 2 WEEKS ON AND 1 WEEK OFF
     Route: 065

REACTIONS (10)
  - Rash [Unknown]
  - Fatigue [Unknown]
  - Dry skin [Unknown]
  - Asthenia [Unknown]
  - Dehydration [Unknown]
  - Weight decreased [Unknown]
  - Decreased appetite [Unknown]
  - Abdominal pain upper [Unknown]
  - Dysgeusia [Unknown]
  - Diarrhoea [Unknown]
